FAERS Safety Report 6038410-1 (Version None)
Quarter: 2009Q1

REPORT INFORMATION
  Report Type: 
  Country: None (occurrence: None)
  Receive Date: 20090113
  Receipt Date: 20090113
  Transmission Date: 20090719
  Serious: Yes (Hospitalization, Other)
  Sender: FDA-Public Use
  Company Number: None

PATIENT
  Age: 52 Year
  Sex: Male
  Weight: 101.1521 kg

DRUGS (2)
  1. QUETIAPINE FUMARATE [Suspect]
     Indication: ANXIETY
     Dosage: 300MG 1 TABLET PO
     Route: 048
     Dates: start: 20060801, end: 20080111
  2. QUETIAPINE FUMARATE [Suspect]
     Indication: PSYCHOTIC DISORDER
     Dosage: 300MG 1 TABLET PO
     Route: 048
     Dates: start: 20060801, end: 20080111

REACTIONS (16)
  - CHEST PAIN [None]
  - DEPRESSION [None]
  - DIZZINESS [None]
  - FALL [None]
  - FRACTURE DELAYED UNION [None]
  - HYPERHIDROSIS [None]
  - HYPOAESTHESIA [None]
  - IMPAIRED HEALING [None]
  - LEG AMPUTATION [None]
  - MOOD ALTERED [None]
  - MOVEMENT DISORDER [None]
  - OEDEMA PERIPHERAL [None]
  - PYREXIA [None]
  - SKIN ULCER [None]
  - STAPHYLOCOCCAL INFECTION [None]
  - SUICIDAL IDEATION [None]
